FAERS Safety Report 7005082-9 (Version None)
Quarter: 2010Q3

REPORT INFORMATION
  Report Type: 
  Country: None (occurrence: None)
  Receive Date: 20100921
  Receipt Date: 20100910
  Transmission Date: 20110219
  Serious: Yes (Hospitalization)
  Sender: FDA-Public Use
  Company Number: PHHY2010DE59857

PATIENT
  Sex: Female

DRUGS (1)
  1. RITALIN LA [Suspect]
     Dosage: 30 MG/ DAY
     Route: 048

REACTIONS (2)
  - BLOOD CREATININE INCREASED [None]
  - PYELONEPHRITIS [None]
